FAERS Safety Report 7278372 (Version 7)
Quarter: 2014Q2

REPORT INFORMATION
  Report Type: Spontaneous
  Country: US (occurrence: US)
  Receive Date: 20100215
  Receipt Date: 20140410
  Transmission Date: 20141212
  Serious: Yes (Hospitalization, Other)
  Sender: FDA-Public Use
  Company Number: US-BAYER-201013716NA

PATIENT
  Age: 19 Year
  Sex: Female
  Weight: 55 kg

DRUGS (13)
  1. OCELLA [Suspect]
     Indication: ACNE
     Dosage: UNK UNK, UNK
     Route: 048
     Dates: start: 20090107, end: 20091015
  2. YASMIN [Suspect]
  3. YAZ [Suspect]
  4. ZOLOFT [Concomitant]
     Indication: DEPRESSION
     Dosage: 100 MG, UNK
     Route: 065
     Dates: start: 20090519
  5. PERCOCET [Concomitant]
     Dates: start: 200001
  6. PHENERGAN [Concomitant]
     Dates: start: 200001
  7. LORTAB [Concomitant]
     Dates: start: 200001
  8. IBUPROFEN [Concomitant]
     Dates: start: 200001
  9. PANTOPRAZOLE [Concomitant]
     Dosage: UNK
     Dates: start: 20090702
  10. PROTONIX [Concomitant]
  11. OXYCOCET [Concomitant]
     Dates: start: 200001
  12. VICODIN [Concomitant]
     Dates: start: 200001
  13. KAPIDEX [Concomitant]
     Indication: GASTRITIS

REACTIONS (3)
  - Gallbladder injury [Unknown]
  - Biliary dyskinesia [None]
  - Cholecystitis chronic [None]
